FAERS Safety Report 9738408 (Version 7)
Quarter: 2015Q3

REPORT INFORMATION
  Report Type: Report from Study
  Country: CA (occurrence: CA)
  Receive Date: 20131208
  Receipt Date: 20150811
  Transmission Date: 20151125
  Serious: Yes (Other)
  Sender: FDA-Public Use
  Company Number: CA-ROCHE-1310168

PATIENT
  Age: 61 Year
  Sex: Male
  Weight: 84.5 kg

DRUGS (7)
  1. ACTEMRA [Suspect]
     Active Substance: TOCILIZUMAB
     Indication: RHEUMATOID ARTHRITIS
     Dosage: ONGOING (PREVIOUS END DATE: 09/OCT/2013)
     Route: 042
     Dates: start: 20130808
  2. ACTEMRA [Suspect]
     Active Substance: TOCILIZUMAB
     Route: 042
  3. COZARTAN [Concomitant]
  4. ACTEMRA [Suspect]
     Active Substance: TOCILIZUMAB
     Route: 042
     Dates: start: 20150204
  5. METHOTREXATE [Concomitant]
     Active Substance: METHOTREXATE
  6. SYNTHROID [Concomitant]
     Active Substance: LEVOTHYROXINE SODIUM
  7. LIPITOR [Concomitant]
     Active Substance: ATORVASTATIN CALCIUM

REACTIONS (11)
  - Ventricular extrasystoles [Unknown]
  - Herpes zoster [Unknown]
  - Hypersensitivity [Unknown]
  - Infected bite [Recovering/Resolving]
  - Heart rate increased [Unknown]
  - Malaise [Unknown]
  - Lower respiratory tract infection [Recovering/Resolving]
  - Inflammation [Not Recovered/Not Resolved]
  - Nausea [Unknown]
  - Weight increased [Unknown]
  - Rash [Recovering/Resolving]

NARRATIVE: CASE EVENT DATE: 201311
